FAERS Safety Report 26154027 (Version 1)
Quarter: 2025Q4

REPORT INFORMATION
  Report Type: Spontaneous
  Country: US (occurrence: US)
  Receive Date: 20251215
  Receipt Date: 20251215
  Transmission Date: 20260118
  Serious: Yes (Other)
  Sender: PHARMACO, LLC
  Company Number: US-PHARMACO-2025PHA00001

PATIENT
  Age: 63 Year
  Sex: Female

DRUGS (1)
  1. SERTRALINE HYDROCHLORIDE [Suspect]
     Active Substance: SERTRALINE HYDROCHLORIDE
     Indication: Major depression

REACTIONS (1)
  - Multiple acyl-coenzyme A dehydrogenase deficiency [Recovered/Resolved]
